FAERS Safety Report 18323728 (Version 3)
Quarter: 2020Q4

REPORT INFORMATION
  Report Type: Report from Study
  Country: BR (occurrence: BR)
  Receive Date: 20200928
  Receipt Date: 20201230
  Transmission Date: 20210113
  Serious: Yes (Other)
  Sender: FDA-Public Use
  Company Number: PHHY2018BR195010

PATIENT
  Age: 55 Year
  Sex: Female
  Weight: 50 kg

DRUGS (2)
  1. COSENTYX [Suspect]
     Active Substance: SECUKINUMAB
     Indication: PSORIASIS
     Dosage: 2 DF(2 AMPOULES OF 150 MG), QMO
     Route: 058
     Dates: start: 201811
  2. COSENTYX [Suspect]
     Active Substance: SECUKINUMAB
     Dosage: 2 DF (2 AMPOULES OF 150 MG), QMO
     Route: 058
     Dates: start: 20181112, end: 20200920

REACTIONS (30)
  - Pyrexia [Recovered/Resolved]
  - Malaise [Recovering/Resolving]
  - Pain [Recovering/Resolving]
  - Gait disturbance [Recovering/Resolving]
  - Wound [Recovered/Resolved]
  - Diarrhoea [Recovered/Resolved]
  - Psoriatic arthropathy [Unknown]
  - Fatigue [Not Recovered/Not Resolved]
  - Stress [Not Recovered/Not Resolved]
  - Psoriasis [Not Recovered/Not Resolved]
  - Pruritus [Not Recovered/Not Resolved]
  - Abdominal pain [Recovering/Resolving]
  - Polyp [Recovering/Resolving]
  - Abdominal pain upper [Recovering/Resolving]
  - Weight decreased [Not Recovered/Not Resolved]
  - Alopecia [Recovering/Resolving]
  - Peripheral swelling [Unknown]
  - Intervertebral disc protrusion [Unknown]
  - Illness [Recovering/Resolving]
  - Vomiting [Recovered/Resolved]
  - Inflammation [Unknown]
  - Joint stiffness [Unknown]
  - Muscle spasms [Not Recovered/Not Resolved]
  - Gastritis [Recovering/Resolving]
  - Gastrointestinal infection [Recovering/Resolving]
  - Gastrointestinal inflammation [Recovering/Resolving]
  - Onychoclasis [Recovering/Resolving]
  - Nervousness [Unknown]
  - Asthenia [Not Recovered/Not Resolved]
  - Decreased appetite [Recovering/Resolving]

NARRATIVE: CASE EVENT DATE: 202002
